APPROVED DRUG PRODUCT: CYPROHEPTADINE HYDROCHLORIDE
Active Ingredient: CYPROHEPTADINE HYDROCHLORIDE
Strength: 4MG
Dosage Form/Route: TABLET;ORAL
Application: A209172 | Product #001 | TE Code: AA
Applicant: STRIDES PHARMA INTERNATIONAL AG
Approved: Apr 11, 2018 | RLD: No | RS: No | Type: RX